FAERS Safety Report 6693794-6 (Version None)
Quarter: 2010Q2

REPORT INFORMATION
  Report Type: 
  Country: None (occurrence: None)
  Receive Date: 20100423
  Receipt Date: 20100415
  Transmission Date: 20101027
  Serious: Yes (Other)
  Sender: FDA-Public Use
  Company Number: US-PFIZER INC-2010048580

PATIENT
  Sex: Female
  Weight: 88.889 kg

DRUGS (1)
  1. CORTEF [Suspect]
     Indication: ADRENAL INSUFFICIENCY
     Dosage: 20 MG IN THE MORNING AND 10 MG IN THE NIGHT
     Route: 048
     Dates: start: 19880322

REACTIONS (4)
  - DYSPEPSIA [None]
  - MEMORY IMPAIRMENT [None]
  - THROAT IRRITATION [None]
  - THYROID DISORDER [None]
